FAERS Safety Report 12745312 (Version 1)
Quarter: 2016Q3

REPORT INFORMATION
  Report Type: Spontaneous
  Country: GB (occurrence: GB)
  Receive Date: 20160915
  Receipt Date: 20160915
  Transmission Date: 20161109
  Serious: Yes (Other)
  Sender: FDA-Public Use
  Company Number: GB-DRREDDYS-GER/UKI/16/0083103

PATIENT
  Age: 64 Year
  Sex: Female
  Weight: 100 kg

DRUGS (9)
  1. TEVA UK OMEPRAZOLE [Suspect]
     Active Substance: OMEPRAZOLE
     Indication: HIATUS HERNIA
     Dosage: 20MG ONCE/DAY WITH OCCASIONAL BURSTS OF 40MG (2X20) ONCE/DAY FOR 2 WEEKS
     Route: 048
     Dates: start: 2016
  2. LEVOTHYROXINE SODIUM. [Concomitant]
     Active Substance: LEVOTHYROXINE SODIUM
     Indication: PRODUCT USED FOR UNKNOWN INDICATION
  3. WINTHROP PHARMS UK OMEPRAZOLE GASTRO RESISTANT [Suspect]
     Active Substance: OMEPRAZOLE
     Indication: HIATUS HERNIA
     Dosage: 20MG ONCE/DAY WITH OCCASIONAL BURSTS OF 40MG (2X20) ONCE/DAY FOR 2 WEEKS
  4. ANADIN [Concomitant]
     Active Substance: IBUPROFEN
     Indication: PRODUCT USED FOR UNKNOWN INDICATION
  5. OMEPRAZOLE CAPSULES, DR. REDDY^S [Suspect]
     Active Substance: OMEPRAZOLE
     Indication: HIATUS HERNIA
     Dosage: 20MG ONCE/DAY WITH OCCASIONAL BURSTS OF 40MG (2X20) ONCE/DAY FOR 2 WEEKS
     Route: 048
  6. KLIOVANCE [Concomitant]
     Active Substance: ESTRADIOL\NORETHINDRONE ACETATE
     Indication: PRODUCT USED FOR UNKNOWN INDICATION
  7. BENADRYL ALLERGY RELIEF [Concomitant]
     Indication: PRODUCT USED FOR UNKNOWN INDICATION
  8. DULOXETINE. [Concomitant]
     Active Substance: DULOXETINE
     Indication: PRODUCT USED FOR UNKNOWN INDICATION
  9. PIRITON [Concomitant]
     Active Substance: CHLORPHENIRAMINE MALEATE
     Indication: PRODUCT USED FOR UNKNOWN INDICATION

REACTIONS (6)
  - Pain [Unknown]
  - Product substitution issue [Unknown]
  - Angioedema [Not Recovered/Not Resolved]
  - Pruritus [Unknown]
  - Reaction to drug excipients [Unknown]
  - Urticaria [Not Recovered/Not Resolved]

NARRATIVE: CASE EVENT DATE: 201604
